FAERS Safety Report 8890032 (Version 1)
Quarter: 2012Q4

REPORT INFORMATION
  Report Type: Spontaneous
  Country: US (occurrence: None)
  Receive Date: 20121107
  Receipt Date: 20121107
  Transmission Date: 20130627
  Serious: No
  Sender: FDA-Public Use
  Company Number: None

PATIENT
  Age: 36 Year
  Sex: Male
  Weight: 74.5 kg

DRUGS (3)
  1. METHYLPREDNISOLONE [Suspect]
     Indication: HERNIATED NUCLEUS PULPOSUS
     Route: 008
     Dates: start: 20120808
  2. METHYLPREDNISOLONE [Suspect]
     Route: 008
     Dates: start: 20120808
  3. METHYLPREDNISOLONE [Suspect]

REACTIONS (1)
  - Product quality issue [None]
